FAERS Safety Report 23202884 (Version 1)
Quarter: 2023Q4

REPORT INFORMATION
  Report Type: Spontaneous
  Country: US (occurrence: US)
  Receive Date: 20231120
  Receipt Date: 20231120
  Transmission Date: 20240110
  Serious: No
  Sender: FDA-Public Use
  Company Number: US-SA-SAC20231115001281

PATIENT
  Sex: Female
  Weight: 47 kg

DRUGS (7)
  1. DUPIXENT [Suspect]
     Active Substance: DUPILUMAB
     Indication: Dermatitis atopic
     Dosage: 300 MG, QOW
     Route: 058
  2. LAMOTRIGINE [Concomitant]
     Active Substance: LAMOTRIGINE
  3. TACROLIMUS [Concomitant]
     Active Substance: TACROLIMUS
  4. FLUOCINONIDE [Concomitant]
     Active Substance: FLUOCINONIDE
  5. ADVAIR HFA [Concomitant]
     Active Substance: FLUTICASONE PROPIONATE\SALMETEROL XINAFOATE
  6. METOPROLOL SUCCINATE [Concomitant]
     Active Substance: METOPROLOL SUCCINATE
  7. HEATHER [NORETHISTERONE] [Concomitant]

REACTIONS (1)
  - Visual impairment [Unknown]
